FAERS Safety Report 24267811 (Version 1)
Quarter: 2024Q3

REPORT INFORMATION
  Report Type: Spontaneous
  Country: US (occurrence: None)
  Receive Date: 20240829
  Receipt Date: 20240829
  Transmission Date: 20241017
  Serious: Yes (Hospitalization)
  Sender: Public
  Company Number: None

PATIENT
  Age: 68 Year
  Sex: Female

DRUGS (1)
  1. CARVYKTI [Suspect]
     Active Substance: CILTACABTAGENE AUTOLEUCEL
     Route: 042
     Dates: start: 20240318, end: 20240318

REACTIONS (4)
  - Cytokine release syndrome [None]
  - Infection [None]
  - Chills [None]
  - Tremor [None]

NARRATIVE: CASE EVENT DATE: 20240826
